FAERS Safety Report 10020625 (Version 2)
Quarter: 2014Q1

REPORT INFORMATION
  Report Type: Spontaneous
  Country: US (occurrence: US)
  Receive Date: 20140319
  Receipt Date: 20140321
  Transmission Date: 20141002
  Serious: Yes (Other)
  Sender: FDA-Public Use
  Company Number: CHPA2014US003989

PATIENT
  Sex: Female

DRUGS (1)
  1. VOLTAREN GEL [Suspect]
     Route: 061

REACTIONS (3)
  - Skin haemorrhage [Recovered/Resolved]
  - Rash [Recovered/Resolved]
  - Drug administered at inappropriate site [Unknown]
